FAERS Safety Report 10950287 (Version 1)
Quarter: 2015Q1

REPORT INFORMATION
  Report Type: Spontaneous
  Country: IL (occurrence: IL)
  Receive Date: 20150324
  Receipt Date: 20150324
  Transmission Date: 20150721
  Serious: Yes (Hospitalization, Other)
  Sender: FDA-Public Use
  Company Number: IL-GILEAD-2015-0140825

PATIENT
  Age: 59 Year
  Sex: Female
  Weight: 65 kg

DRUGS (4)
  1. RIBAVIRIN. [Suspect]
     Active Substance: RIBAVIRIN
     Indication: HEPATITIS C
     Dosage: 800 MG, UNK
     Route: 065
     Dates: start: 20150204, end: 20150301
  2. PROGRAF [Concomitant]
     Active Substance: TACROLIMUS\TACROLIMUS ANHYDROUS
  3. SOVALDI [Suspect]
     Active Substance: SOFOSBUVIR
     Indication: HEPATITIS C
     Dosage: 400 MG, UNK
     Route: 065
     Dates: start: 20150204
  4. OLYSIO [Concomitant]
     Active Substance: SIMEPREVIR
     Dosage: UNK
     Dates: start: 20150204

REACTIONS (4)
  - Asthenia [Unknown]
  - Fatigue [Unknown]
  - Haemoglobin abnormal [Unknown]
  - Blood creatinine increased [Unknown]

NARRATIVE: CASE EVENT DATE: 20150301
